FAERS Safety Report 23582256 (Version 2)
Quarter: 2024Q2

REPORT INFORMATION
  Report Type: Spontaneous
  Country: US (occurrence: US)
  Receive Date: 20240229
  Receipt Date: 20240521
  Transmission Date: 20240716
  Serious: No
  Sender: FDA-Public Use
  Company Number: US-SA-SAC20240223000080

PATIENT
  Sex: Female

DRUGS (17)
  1. DUPIXENT [Suspect]
     Active Substance: DUPILUMAB
     Indication: Asthma
     Dosage: 300 MG, QOW
     Route: 058
     Dates: start: 20200909
  2. DUPIXENT [Suspect]
     Active Substance: DUPILUMAB
     Dosage: 300 MG, QOW
     Route: 058
  3. IBRANCE [Concomitant]
     Active Substance: PALBOCICLIB
     Dosage: UNK
  4. IBRANCE [Concomitant]
     Active Substance: PALBOCICLIB
  5. AMOXICILLIN [Concomitant]
     Active Substance: AMOXICILLIN
  6. LATANOPROST [Concomitant]
     Active Substance: LATANOPROST
  7. OLMESARTAN MEDOXOMIL [Concomitant]
     Active Substance: OLMESARTAN MEDOXOMIL
  8. FLUTICASONE [Concomitant]
     Active Substance: FLUTICASONE
  9. ALBUTEROL SULFATE [Concomitant]
     Active Substance: ALBUTEROL SULFATE
  10. PANTOPRAZOLE [Concomitant]
     Active Substance: PANTOPRAZOLE
  11. MONTELUKAST [Concomitant]
     Active Substance: MONTELUKAST SODIUM
  12. PROLIA [Concomitant]
     Active Substance: DENOSUMAB
  13. ESCITALOPRAM [Concomitant]
     Active Substance: ESCITALOPRAM OXALATE
  14. ROSUVASTATIN [Concomitant]
     Active Substance: ROSUVASTATIN
  15. LEVOCETIRIZINE [Concomitant]
     Active Substance: LEVOCETIRIZINE
  16. CYCLOBENZAPRINE [Concomitant]
     Active Substance: CYCLOBENZAPRINE
  17. BREZTRI [Concomitant]
     Active Substance: BUDESONIDE\FORMOTEROL\GLYCOPYRROLATE

REACTIONS (3)
  - Cough [Unknown]
  - Impaired quality of life [Unknown]
  - Drug ineffective [Unknown]
